FAERS Safety Report 4330697-6 (Version None)
Quarter: 2004Q2

REPORT INFORMATION
  Report Type: 
  Country: None (occurrence: None)
  Receive Date: 20040402
  Receipt Date: 20040326
  Transmission Date: 20050107
  Serious: Yes (Other)
  Sender: FDA-Public Use
  Company Number: FR-ROCHE-362999

PATIENT
  Age: 17 Year
  Sex: Male
  Weight: 57 kg

DRUGS (2)
  1. ROACCUTANE [Suspect]
     Indication: DRUG USE FOR UNKNOWN INDICATION
     Route: 065
     Dates: start: 20010225, end: 20020815
  2. ROACCUTANE [Suspect]
     Route: 065
     Dates: start: 20030415, end: 20030915

REACTIONS (2)
  - SKIN NECROSIS [None]
  - UNEVALUABLE EVENT [None]
